FAERS Safety Report 6928153-1 (Version None)
Quarter: 2010Q3

REPORT INFORMATION
  Report Type: 
  Country: None (occurrence: None)
  Receive Date: 20100817
  Receipt Date: 20100805
  Transmission Date: 20110219
  Serious: Yes (Hospitalization, Other)
  Sender: FDA-Public Use
  Company Number: BR-MEDIMMUNE-MEDI-0011431

PATIENT
  Sex: Male
  Weight: 4.8 kg

DRUGS (1)
  1. SYNAGIS [Suspect]
     Indication: BRONCHOPULMONARY DYSPLASIA
     Dates: start: 20100707, end: 20100707

REACTIONS (3)
  - CARDIAC ARREST [None]
  - CARDIAC INFECTION [None]
  - PLEURAL EFFUSION [None]
